FAERS Safety Report 11463156 (Version 2)
Quarter: 2015Q4

REPORT INFORMATION
  Report Type: Report from Study
  Country: JP (occurrence: JP)
  Receive Date: 20150905
  Receipt Date: 20151012
  Transmission Date: 20160304
  Serious: Yes (Other)
  Sender: FDA-Public Use
  Company Number: JP-AMGEN-JPNCT2015091546

PATIENT
  Age: 83 Year
  Sex: Male
  Weight: 46 kg

DRUGS (20)
  1. BIO-THREE [Concomitant]
     Active Substance: HERBALS
     Indication: DYSCHEZIA
     Dosage: 3 DF, UNK
     Route: 048
  2. AMLODIPINE [Concomitant]
     Active Substance: AMLODIPINE BESYLATE
     Indication: HYPERTENSION
     Dosage: 5 MG, QD
     Route: 048
  3. CARBOCISTEINE [Concomitant]
     Active Substance: CARBOCYSTEINE
     Indication: BRONCHITIS CHRONIC
     Dosage: 750 MG, UNK
     Route: 048
  4. LANSOPRAZOLE. [Concomitant]
     Active Substance: LANSOPRAZOLE
     Dosage: 15 MG, UNK
     Route: 048
  5. CINACALCET HCL - KHK [Suspect]
     Active Substance: CINACALCET HYDROCHLORIDE
     Indication: HYPERPARATHYROIDISM PRIMARY
     Dosage: 25 MG, QD
     Route: 048
     Dates: start: 20140520
  6. MAGNESIUM OXIDE. [Concomitant]
     Active Substance: MAGNESIUM OXIDE
     Indication: DYSCHEZIA
     Dosage: 1.5 G, UNK
     Route: 048
  7. PROCYLIN [Concomitant]
     Active Substance: BERAPROST SODIUM
     Indication: PERIPHERAL ARTERIAL OCCLUSIVE DISEASE
     Dosage: 40 MUG, UNK
     Route: 048
  8. SODIUM PICOSULFATE [Concomitant]
     Active Substance: SODIUM PICOSULFATE
     Indication: DYSCHEZIA
     Dosage: UNK UNK, AS NECESSARY
     Route: 050
  9. KINDAVATE [Concomitant]
     Indication: PRURITUS GENERALISED
     Dosage: UNK, AS NECESSARY
     Route: 062
  10. ACTONEL [Concomitant]
     Active Substance: RISEDRONATE SODIUM
     Indication: HYPERPARATHYROIDISM PRIMARY
     Dosage: 17.5 MG, UNK
     Route: 048
  11. OPALMON [Concomitant]
     Active Substance: LIMAPROST
     Indication: PERIPHERAL ARTERIAL OCCLUSIVE DISEASE
     Dosage: 5 MUG, UNK
     Route: 048
  12. FEXOFENADINE HYDROCHLORIDE. [Concomitant]
     Active Substance: FEXOFENADINE HYDROCHLORIDE
     Indication: PRURITUS GENERALISED
     Dosage: 60 MG, UNK
     Route: 048
  13. ISODINE [Concomitant]
     Active Substance: POVIDONE-IODINE
     Dosage: UNK, AS NECESSARY
     Route: 049
  14. EQUA [Concomitant]
     Active Substance: VILDAGLIPTIN
     Indication: TYPE 2 DIABETES MELLITUS
     Dosage: 50 MG, UNK
     Route: 048
  15. FERROUS CITRATE NA [Concomitant]
     Indication: CHRONIC KIDNEY DISEASE
     Dosage: 50 MG, UNK
     Route: 048
  16. NEO-MEDROL                         /00259601/ [Concomitant]
     Indication: PRURITUS GENERALISED
     Dosage: UNK UNK, AS NECESSARY
     Route: 062
  17. MOHRUS [Concomitant]
     Active Substance: KETOPROFEN
     Dosage: UNK UNK, AS NECESSARY
     Route: 061
  18. PANTOSIN [Concomitant]
     Active Substance: PANTETHINE
     Indication: DYSCHEZIA
     Dosage: 3 G, UNK
     Route: 048
  19. MEDICON                            /00048102/ [Concomitant]
     Active Substance: DEXTROMETHORPHAN HYDROBROMIDE
     Indication: BRONCHITIS CHRONIC
     Dosage: 90 MG, UNK
     Route: 048
  20. MYTEAR                             /00629201/ [Concomitant]
     Dosage: UNK UNK, AS NECESSARY
     Route: 031

REACTIONS (5)
  - Volvulus [Recovered/Resolved]
  - Volvulus [Recovered/Resolved]
  - Supraventricular extrasystoles [Recovered/Resolved]
  - Electrocardiogram abnormal [Unknown]
  - Volvulus [Recovered/Resolved]

NARRATIVE: CASE EVENT DATE: 20140828
